FAERS Safety Report 6121764-5 (Version None)
Quarter: 2009Q1

REPORT INFORMATION
  Report Type: 
  Country: None (occurrence: None)
  Receive Date: 20090317
  Receipt Date: 20090313
  Transmission Date: 20090719
  Serious: Yes (Hospitalization)
  Sender: FDA-Public Use
  Company Number: JP-B.I. PHARMACEUTICALS,INC./RIDGEFIELD-2009-BP-00862NB

PATIENT
  Sex: Male
  Weight: 62 kg

DRUGS (6)
  1. SPIRIVA [Suspect]
     Indication: ASTHMA
     Dosage: 18MCG
     Route: 055
     Dates: start: 20081205, end: 20081206
  2. SINGULAIR [Concomitant]
     Indication: ASTHMA
     Dosage: 10MG
     Route: 048
     Dates: start: 20081205
  3. ADOAIR [Concomitant]
     Indication: ASTHMA
     Route: 055
     Dates: start: 20081205
  4. HOKUNALIN: TAPE [Concomitant]
     Indication: ASTHMA
     Dosage: 2MG
     Route: 062
     Dates: start: 20081205
  5. NORMAL SALINE + NEOPHYLLIN [Concomitant]
     Indication: ASTHMA
     Route: 042
     Dates: start: 20081205, end: 20081205
  6. NORMAL SALINE + SAXIZON [Concomitant]
     Indication: ASTHMA
     Route: 042
     Dates: start: 20081205, end: 20081205

REACTIONS (4)
  - DYSURIA [None]
  - POLLAKIURIA [None]
  - RESIDUAL URINE [None]
  - URINARY RETENTION [None]
